FAERS Safety Report 8544959-X (Version None)
Quarter: 2012Q3

REPORT INFORMATION
  Report Type: 
  Country: None (occurrence: None)
  Receive Date: 20120727
  Receipt Date: 20120724
  Transmission Date: 20120928
  Serious: Yes (Other)
  Sender: FDA-Public Use
  Company Number: FR-ROCHE-1091992

PATIENT
  Age: 62 Year
  Sex: Female

DRUGS (8)
  1. FLUOROURACIL [Concomitant]
     Dosage: WAS STOPPED.
  2. LEUCOVORIN CALCIUM [Concomitant]
     Dosage: WAS STOPPED.
  3. AVASTIN [Suspect]
     Indication: COLORECTAL CANCER METASTATIC
     Dosage: STARTED WITH FOLFIRI
  4. OXALIPLATIN [Concomitant]
  5. IRINOTECAN HCL [Concomitant]
  6. AVASTIN [Suspect]
     Dosage: CHEMOTHERAPY RE-INTRODUCED
  7. FLUOROURACIL [Concomitant]
     Dosage: WAS REINTRODUCED
  8. LEUCOVORIN CALCIUM [Concomitant]
     Dosage: WAS REINTRODUCED

REACTIONS (1)
  - DIAPHRAGMATIC RUPTURE [None]
